FAERS Safety Report 23384551 (Version 2)
Quarter: 2024Q1

REPORT INFORMATION
  Report Type: Spontaneous
  Country: CH (occurrence: CH)
  Receive Date: 20240109
  Receipt Date: 20240110
  Transmission Date: 20240410
  Serious: Yes (Life-Threatening, Hospitalization, Other)
  Sender: FDA-Public Use
  Company Number: None

PATIENT
  Age: 51 Year
  Sex: Female

DRUGS (30)
  1. PEMBROLIZUMAB [Suspect]
     Active Substance: PEMBROLIZUMAB
     Indication: Cervix carcinoma
     Dosage: DOSE AND ROUTE OF ADMINISTRATION UNKNOWN. LAST TIME OF ADMINISTRATION 27.03.2023
     Route: 065
     Dates: end: 20230327
  2. CEFTRIAXONE [Suspect]
     Active Substance: CEFTRIAXONE\CEFTRIAXONE SODIUM
     Indication: Urinary tract infection
     Dosage: DOSE AND ROUTE OF ADMINISTRATION UNKNOWN
     Route: 065
     Dates: start: 20230505, end: 20230506
  3. PIPERACILLIN AND TAZOBACTAM [Suspect]
     Active Substance: PIPERACILLIN SODIUM\TAZOBACTAM SODIUM
     Dosage: DOSE, ROUTE OF ADMINISTRATION AND INDICATION UNKNOWN
     Route: 065
     Dates: start: 20230430, end: 20230504
  4. FLUCONAZOLE [Suspect]
     Active Substance: FLUCONAZOLE
     Dosage: DOSE, ROUTE OF ADMINISTRATION AND INDICATION UNKNOWN
     Route: 065
     Dates: start: 20230502, end: 20230502
  5. IOMERON [Suspect]
     Active Substance: IOMEPROL
     Dosage: 4 GRAM
     Dates: start: 20230729, end: 20230729
  6. IOMERON [Suspect]
     Active Substance: IOMEPROL
     Dosage: UNK
     Dates: start: 20230429, end: 20230429
  7. EUTHYROX [Concomitant]
     Active Substance: LEVOTHYROXINE SODIUM
     Dosage: START-, ENDDATE, INDICATION AND ROUTE OF ADMINISTRATION UNKNOWNTHE MEDICATION WAS ADMINISTERED O...
  8. EUTHYROX [Concomitant]
     Active Substance: LEVOTHYROXINE SODIUM
     Dosage: 100 MICROGRAM
  9. POTASSIUM BICARBONATE\POTASSIUM CITRATE [Concomitant]
     Active Substance: POTASSIUM BICARBONATE\POTASSIUM CITRATE
     Dosage: START-, ENDDATE, INDICATION UNKNOWN.TWICE DAILY: ONCE IN THE MORNING AND ONCE IN THE EVENING.
     Route: 048
  10. POTASSIUM BICARBONATE\POTASSIUM CITRATE [Concomitant]
     Active Substance: POTASSIUM BICARBONATE\POTASSIUM CITRATE
     Dosage: 60 MILLIMOLE
     Route: 048
     Dates: end: 20230731
  11. DUPHALAC [Concomitant]
     Active Substance: LACTULOSE
     Dosage: START-, ENDDATE, INDICATION AND STRENGTH UNKNOWN.20 ML WERE CONSUMED ONCE IN THE MORNING AND ONC...
     Route: 048
  12. DUPHALAC [Concomitant]
     Active Substance: LACTULOSE
     Dosage: 20 MILLILITER
     Route: 048
  13. HEPARIN [Concomitant]
     Active Substance: HEPARIN SODIUM
     Dosage: START-, ENDDATE, INDICATION UNKNOWN. 20000 I.E. / 48 ML ADMINISTERED, BUT IT IS NOT KNOWN HOW OFT...
     Route: 042
  14. ERTAPENEM [Concomitant]
     Active Substance: ERTAPENEM
     Dosage: ONCE DAILY IN THE EVENING. ENDDATE, INDICATION NOT EXPLICITLY STATED.
     Route: 042
     Dates: start: 20230507
  15. NOVORAPID [Concomitant]
     Active Substance: INSULIN ASPART
     Dosage: START-, ENDDATE, INDICATION UNKNOWN. DOSE WAS 100 UNITS / ML ACCORDING TO THE SCHEME
     Route: 058
  16. CODEINE [Concomitant]
     Active Substance: CODEINE
     Dosage: TRADENAME, START-, ENDDATE, INDICATION, ROUTE OF ADMINISTRATION, DOSE AND HOW OFTEN IT WAS ADMINI...
  17. LORAZEPAM [Concomitant]
     Active Substance: LORAZEPAM
     Dosage: TRADENAME, START-, ENDDATE, INDICATION, ROUTE OF ADMINISTRATION, DOSE AND HOW OFTEN IT WAS ADMINI...
  18. METAMIZOLE [Concomitant]
     Active Substance: METAMIZOLE
     Dosage: TRADENAME, START-, ENDDATE, INDICATION, ROUTE OF ADMINISTRATION, DOSE AND HOW OFTEN IT WAS ADMINI...
  19. ONDANSETRON [Concomitant]
     Active Substance: ONDANSETRON
     Dosage: TRADENAME, START-, ENDDATE, INDICATION, ROUTE OF ADMINISTRATION, DOSE AND HOW OFTEN IT WAS ADMINI...
  20. POLYETHYLENE GLYCOLS [Concomitant]
     Active Substance: POLYETHYLENE GLYCOLS
     Dosage: TRADENAME, START-, ENDDATE, INDICATION, ROUTE OF ADMINISTRATION, DOSE AND HOW OFTEN IT WAS ADMINI...
  21. ACETAMINOPHEN [Concomitant]
     Active Substance: ACETAMINOPHEN
     Dosage: TRADENAME, START-, ENDDATE, INDICATION, ROUTE OF ADMINISTRATION, DOSE AND HOW OFTEN IT WAS ADMINI...
  22. MAGNESIUM [Concomitant]
     Active Substance: MAGNESIUM
     Dosage: TRADENAME, START-, ENDDATE, INDICATION, ROUTE OF ADMINISTRATION, DOSE AND HOW OFTEN IT WAS ADMINI...
  23. BUTYLSCOPOLAMINE [Concomitant]
     Active Substance: BUTYLSCOPOLAMINE
     Dosage: TRADENAME, START-, ENDDATE, INDICATION, ROUTE OF ADMINISTRATION, DOSE AND HOW OFTEN IT WAS ADMINI...
  24. HYDROCODONE [Concomitant]
     Active Substance: HYDROCODONE
     Dosage: TRADENAME, START-, ENDDATE, INDICATION, ROUTE OF ADMINISTRATION, DOSE AND HOW OFTEN IT WAS ADMINI...
  25. CLEMASTINE [Concomitant]
     Active Substance: CLEMASTINE
     Dates: start: 20230501, end: 20230504
  26. FOLIC ACID [Concomitant]
     Active Substance: FOLIC ACID
     Dosage: 5 MILLIGRAM
  27. ELIQUIS [Concomitant]
     Active Substance: APIXABAN
     Dosage: 5 MILLIGRAM
  28. PANTOPRAZOLE [Concomitant]
     Active Substance: PANTOPRAZOLE
     Dosage: 40 MILLIGRAM
  29. DOMPERIDONE [Concomitant]
     Active Substance: DOMPERIDONE
     Dosage: AS NECESSARY
  30. VALVERDE SCHLAF [Concomitant]
     Dosage: AS NECESSARY

REACTIONS (2)
  - Autoimmune haemolytic anaemia [Recovering/Resolving]
  - Anaemia [Recovering/Resolving]

NARRATIVE: CASE EVENT DATE: 20230101
